FAERS Safety Report 7607590-6 (Version None)
Quarter: 2011Q3

REPORT INFORMATION
  Report Type: 
  Country: None (occurrence: None)
  Receive Date: 20110713
  Receipt Date: 20110705
  Transmission Date: 20111222
  Serious: Yes (Hospitalization)
  Sender: FDA-Public Use
  Company Number: PHHO2007AU21238

PATIENT
  Sex: Female

DRUGS (1)
  1. EVEROLIMUS [Suspect]
     Indication: HEART TRANSPLANT
     Dosage: 1.5 MG, BID
     Route: 048
     Dates: start: 20071217, end: 20071229

REACTIONS (11)
  - CHILLS [None]
  - NAUSEA [None]
  - WOUND COMPLICATION [None]
  - PERICARDIAL EFFUSION [None]
  - PYREXIA [None]
  - BRADYCARDIA [None]
  - PLEURAL EFFUSION [None]
  - POSTOPERATIVE WOUND INFECTION [None]
  - MALAISE [None]
  - NODAL RHYTHM [None]
  - ATRIOVENTRICULAR BLOCK [None]
